FAERS Safety Report 6412203-5 (Version None)
Quarter: 2009Q4

REPORT INFORMATION
  Report Type: 
  Country: None (occurrence: None)
  Receive Date: 20091023
  Receipt Date: 20091015
  Transmission Date: 20100525
  Serious: Yes (Hospitalization)
  Sender: FDA-Public Use
  Company Number: B0586034A

PATIENT
  Sex: Female

DRUGS (5)
  1. TYVERB [Suspect]
     Route: 048
     Dates: start: 20090601, end: 20090718
  2. CAPECITABINE [Suspect]
     Route: 065
  3. VITAMIN B6 [Concomitant]
     Route: 065
  4. STEMETIL [Concomitant]
     Route: 065
  5. MOTILIUM [Concomitant]
     Route: 065

REACTIONS (9)
  - DEHYDRATION [None]
  - DIARRHOEA [None]
  - HEART RATE INCREASED [None]
  - HERPES ZOSTER [None]
  - HYPOTENSION [None]
  - LOCALISED INFECTION [None]
  - PYREXIA [None]
  - RENAL DISORDER [None]
  - SOMNOLENCE [None]
